FAERS Safety Report 13248738 (Version 2)
Quarter: 2019Q1

REPORT INFORMATION
  Report Type: Spontaneous
  Country: US (occurrence: US)
  Receive Date: 20170218
  Receipt Date: 20190115
  Transmission Date: 20190417
  Serious: No
  Sender: FDA-Public Use
  Company Number: US-ALLERGAN-1601969US

PATIENT
  Sex: Male
  Weight: 81.63 kg

DRUGS (3)
  1. ARTIFICIAL TEARS [Concomitant]
     Active Substance: GLYCERIN\HYPROMELLOSES\POLYETHYLENE GLYCOL 400
     Indication: DRY EYE
     Dosage: 2 GTT, PRN
     Route: 047
  2. RESTASIS [Suspect]
     Active Substance: CYCLOSPORINE
     Dosage: UNK
     Route: 047
     Dates: start: 201511
  3. RESTASIS [Suspect]
     Active Substance: CYCLOSPORINE
     Indication: DRY EYE
     Dosage: UNK, BID
     Route: 047
     Dates: start: 20151220

REACTIONS (6)
  - Punctal plug insertion [Unknown]
  - Incorrect dose administered [Unknown]
  - Product dose omission [Unknown]
  - Eye irritation [Not Recovered/Not Resolved]
  - Multiple use of single-use product [Unknown]
  - Drug ineffective [Unknown]
